FAERS Safety Report 9147964 (Version 1)
Quarter: 2013Q1

REPORT INFORMATION
  Report Type: Spontaneous
  Country: US (occurrence: US)
  Receive Date: 20130227
  Receipt Date: 20130227
  Transmission Date: 20140127
  Serious: Yes (Other)
  Sender: FDA-Public Use
  Company Number: US-BRACCO-005564

PATIENT
  Age: 33 Year
  Sex: Female
  Weight: 82 kg

DRUGS (4)
  1. ISOVUE 370 [Suspect]
     Indication: COMPUTERISED TOMOGRAM ABDOMEN
     Route: 042
     Dates: start: 20101123, end: 20101123
  2. ISOVUE 370 [Suspect]
     Indication: ABDOMINAL PAIN UPPER
     Route: 042
     Dates: start: 20101123, end: 20101123
  3. GLIPIZIDE [Concomitant]
     Indication: DIABETES MELLITUS
  4. METFORMIN [Concomitant]
     Indication: DIABETES MELLITUS

REACTIONS (1)
  - Anaphylactoid reaction [Recovered/Resolved]
